FAERS Safety Report 23885350 (Version 1)
Quarter: 2024Q2

REPORT INFORMATION
  Report Type: Spontaneous
  Country: US (occurrence: US)
  Receive Date: 20240522
  Receipt Date: 20240522
  Transmission Date: 20240715
  Serious: No
  Sender: FDA-Public Use
  Company Number: US-JNJFOC-20240558229

PATIENT

DRUGS (3)
  1. ERLEADA [Suspect]
     Active Substance: APALUTAMIDE
     Indication: Product used for unknown indication
     Route: 048
  2. TRADJENTA [Suspect]
     Active Substance: LINAGLIPTIN
     Route: 065
  3. ROFLUMILAST [Interacting]
     Active Substance: ROFLUMILAST
     Route: 065

REACTIONS (1)
  - Drug interaction [Unknown]
